FAERS Safety Report 8178728-X (Version None)
Quarter: 2012Q1

REPORT INFORMATION
  Report Type: 
  Country: None (occurrence: None)
  Receive Date: 20120301
  Receipt Date: 20120301
  Transmission Date: 20120608
  Serious: No
  Sender: FDA-Public Use
  Company Number: None

PATIENT
  Sex: Male
  Weight: 90.718 kg

DRUGS (4)
  1. LIPITOR [Suspect]
     Indication: BLOOD CHOLESTEROL INCREASED
     Dosage: 40 MG
     Dates: start: 20120106, end: 20120114
  2. ALLOPURINOL [Concomitant]
     Route: 048
  3. FLOMAX [Concomitant]
     Indication: PROSTATIC DISORDER
     Dosage: 0.4 MG
     Dates: start: 20120106, end: 20120114
  4. LISINOPRIL [Concomitant]
     Route: 048

REACTIONS (2)
  - DYSPHAGIA [None]
  - CEREBROVASCULAR ACCIDENT [None]
